FAERS Safety Report 5762742-5 (Version None)
Quarter: 2008Q2

REPORT INFORMATION
  Report Type: 
  Country: None (occurrence: None)
  Receive Date: 20080527
  Receipt Date: 20071031
  Transmission Date: 20081010
  Serious: Yes (Life-Threatening, Hospitalization)
  Sender: FDA-Public Use
  Company Number: 249957

PATIENT
  Age: 54 Year
  Sex: Female
  Weight: 81.6 kg

DRUGS (4)
  1. HERCEPTIN [Suspect]
     Indication: BREAST CANCER
     Dosage: 4 MG/KG
     Dates: start: 20070901
  2. TAXOTERE [Concomitant]
  3. CARBOPLATIN [Concomitant]
  4. STEROID (NAME UNKNOWN) (STEROID NOS) [Concomitant]

REACTIONS (1)
  - THROMBOCYTOPENIA [None]
